FAERS Safety Report 8000421-4 (Version None)
Quarter: 2011Q4

REPORT INFORMATION
  Report Type: 
  Country: None (occurrence: None)
  Receive Date: 20111222
  Receipt Date: 20110224
  Transmission Date: 20120403
  Serious: No
  Sender: FDA-Public Use
  Company Number: US-BRISTOL-MYERS SQUIBB COMPANY-15569262

PATIENT
  Age: 78 Year
  Sex: Male

DRUGS (6)
  1. PLAVIX [Concomitant]
  2. PRAVACHOL [Suspect]
     Dosage: DURATION: 15 MONTHS
  3. METOPROLOL TARTRATE [Concomitant]
  4. NIASPAN [Concomitant]
  5. MULTI-VITAMINS [Concomitant]
  6. ASPIRIN [Concomitant]

REACTIONS (1)
  - MUSCLE SPASMS [None]
